FAERS Safety Report 13780768 (Version 1)
Quarter: 2017Q3

REPORT INFORMATION
  Report Type: Spontaneous
  Country: US (occurrence: US)
  Receive Date: 20170721
  Receipt Date: 20170721
  Transmission Date: 20171127
  Serious: Yes (Life-Threatening)
  Sender: FDA-Public Use
  Company Number: None

PATIENT
  Age: 63 Year
  Sex: Male
  Weight: 159 kg

DRUGS (13)
  1. NEBIVOLOL. [Concomitant]
     Active Substance: NEBIVOLOL
  2. FUROSEMIDE. [Concomitant]
     Active Substance: FUROSEMIDE
  3. LISINOPRIL. [Suspect]
     Active Substance: LISINOPRIL
     Indication: HYPERTENSION
     Dosage: ?          OTHER DOSE:MG;?
     Route: 048
     Dates: start: 20170101, end: 20170503
  4. MELOXICAM. [Concomitant]
     Active Substance: MELOXICAM
  5. MONTELUKAST [Concomitant]
     Active Substance: MONTELUKAST SODIUM
  6. COPAXONE [Concomitant]
     Active Substance: GLATIRAMER ACETATE
  7. K-DUR [Concomitant]
     Active Substance: POTASSIUM CHLORIDE
  8. SIMVASTATIN. [Concomitant]
     Active Substance: SIMVASTATIN
  9. VICODIN [Concomitant]
     Active Substance: ACETAMINOPHEN\HYDROCODONE BITARTRATE
  10. ESCITALOPRAM [Concomitant]
     Active Substance: ESCITALOPRAM OXALATE
  11. LISINOPRIL. [Concomitant]
     Active Substance: LISINOPRIL
  12. MEMANTINE. [Concomitant]
     Active Substance: MEMANTINE
  13. VANCOMYCIN [Concomitant]
     Active Substance: VANCOMYCIN

REACTIONS (4)
  - Crying [None]
  - Angioedema [None]
  - Anaphylactic reaction [None]
  - Peripheral swelling [None]

NARRATIVE: CASE EVENT DATE: 20170503
